FAERS Safety Report 9459456 (Version 1)
Quarter: 2013Q3

REPORT INFORMATION
  Report Type: Spontaneous
  Country: FR (occurrence: FR)
  Receive Date: 20130815
  Receipt Date: 20130815
  Transmission Date: 20140515
  Serious: Yes (Death)
  Sender: FDA-Public Use
  Company Number: FR-ROCHE-1261917

PATIENT
  Age: 49 Year
  Sex: Male

DRUGS (6)
  1. PEGASYS [Suspect]
     Indication: HEPATITIS C
     Route: 058
     Dates: start: 20120321
  2. RIBAVIRIN [Suspect]
     Indication: HEPATITIS C
     Route: 048
     Dates: start: 20120321
  3. INCIVO [Suspect]
     Indication: HEPATITIS C
     Dosage: 375 MG/TABLET
     Route: 048
     Dates: start: 20120321
  4. EFFERALGAN CODEINE [Suspect]
     Indication: BACK PAIN
     Dosage: 10 TABLETS/D MAXM, 10G/D
     Route: 048
  5. SERESTA [Concomitant]
  6. VALIUM [Concomitant]

REACTIONS (1)
  - Gastrointestinal haemorrhage [Fatal]
